FAERS Safety Report 18016434 (Version 1)
Quarter: 2020Q3

REPORT INFORMATION
  Report Type: Spontaneous
  Country: US (occurrence: US)
  Receive Date: 20200713
  Receipt Date: 20200713
  Transmission Date: 20201103
  Serious: No
  Sender: FDA-Public Use
  Company Number: US-THERATECHNOLOGIES INC.-2020-THE-TES-000019

PATIENT
  Sex: Male

DRUGS (1)
  1. EGRIFTA [Suspect]
     Active Substance: TESAMORELIN ACETATE
     Indication: LIPODYSTROPHY ACQUIRED
     Dosage: UNK
     Route: 058
     Dates: start: 2020, end: 202006

REACTIONS (4)
  - Peripheral swelling [Unknown]
  - Joint swelling [Not Recovered/Not Resolved]
  - Limb discomfort [Unknown]
  - Mass [Not Recovered/Not Resolved]
